FAERS Safety Report 4564958-2 (Version None)
Quarter: 2005Q1

REPORT INFORMATION
  Report Type: 
  Country: None (occurrence: None)
  Receive Date: 20050131
  Receipt Date: 20050120
  Transmission Date: 20050727
  Serious: Yes (Hospitalization)
  Sender: FDA-Public Use
  Company Number: FR-JNJFOC-20050104798

PATIENT
  Age: 80 Year
  Sex: Female

DRUGS (6)
  1. DURAGESIC [Suspect]
     Indication: PAIN
     Route: 062
  2. NEURONTIN [Suspect]
     Indication: PAIN
     Route: 049
  3. ACTISKENAN [Suspect]
     Indication: DRUG USE FOR UNKNOWN INDICATION
     Route: 049
  4. KARDEGIC [Concomitant]
     Route: 065
  5. BURINEX [Concomitant]
     Route: 065
  6. CORDARONE [Concomitant]
     Route: 065

REACTIONS (4)
  - CONFUSIONAL STATE [None]
  - FALL [None]
  - MALAISE [None]
  - SPINAL COMPRESSION FRACTURE [None]
